FAERS Safety Report 11522643 (Version 1)
Quarter: 2015Q3

REPORT INFORMATION
  Report Type: Spontaneous
  Country: US (occurrence: US)
  Receive Date: 20150903
  Receipt Date: 20150903
  Transmission Date: 20151125
  Serious: No
  Sender: FDA-Public Use
  Company Number: US-ELI_LILLY_AND_COMPANY-US201211007236

PATIENT
  Age: 52 Year
  Sex: Female

DRUGS (13)
  1. CYMBALTA [Suspect]
     Active Substance: DULOXETINE HYDROCHLORIDE
     Indication: BACK PAIN
     Dosage: 30 MG, QD
     Dates: start: 20120904
  2. ACETAMINOPHEN. [Concomitant]
     Active Substance: ACETAMINOPHEN
  3. SUMATRIPTAN. [Concomitant]
     Active Substance: SUMATRIPTAN
  4. TUMS [Concomitant]
     Active Substance: CALCIUM CARBONATE
  5. VITAMIN D3 [Concomitant]
     Active Substance: CHOLECALCIFEROL
  6. FISH OIL [Concomitant]
     Active Substance: FISH OIL
  7. FLUTICASONE [Concomitant]
     Active Substance: FLUTICASONE\FLUTICASONE PROPIONATE
  8. OXYCODONE [Concomitant]
     Active Substance: OXYCODONE
  9. LITHIUM. [Concomitant]
     Active Substance: LITHIUM
  10. CYMBALTA [Suspect]
     Active Substance: DULOXETINE HYDROCHLORIDE
     Dosage: 20 MG, QD
     Dates: end: 20121109
  11. GABAPENTIN. [Concomitant]
     Active Substance: GABAPENTIN
  12. MAGNESIUM [Concomitant]
     Active Substance: MAGNESIUM
  13. METHOCARBAMOL. [Concomitant]
     Active Substance: METHOCARBAMOL

REACTIONS (7)
  - Intentional product misuse [Not Recovered/Not Resolved]
  - Nervousness [Not Recovered/Not Resolved]
  - Wrong technique in product usage process [Recovered/Resolved]
  - Muscle tightness [Not Recovered/Not Resolved]
  - Gastrooesophageal reflux disease [Recovered/Resolved]
  - Malaise [Not Recovered/Not Resolved]
  - Drug withdrawal syndrome [Not Recovered/Not Resolved]
